FAERS Safety Report 24328028 (Version 7)
Quarter: 2025Q2

REPORT INFORMATION
  Report Type: Report from Study
  Country: JP (occurrence: JP)
  Receive Date: 20240917
  Receipt Date: 20250530
  Transmission Date: 20250717
  Serious: Yes (Death, Other)
  Sender: ALEXION PHARMACEUTICALS
  Company Number: JP-AstraZeneca-CH-00698921A

PATIENT
  Age: 80 Year
  Weight: 43 kg

DRUGS (7)
  1. DANICOPAN [Suspect]
     Active Substance: DANICOPAN
     Indication: Paroxysmal nocturnal haemoglobinuria
     Dosage: 150 MILLIGRAM, TID
  2. DANICOPAN [Suspect]
     Active Substance: DANICOPAN
     Dosage: 300 MILLIGRAM, TID
  3. DANICOPAN [Suspect]
     Active Substance: DANICOPAN
     Dosage: 150 MILLIGRAM, TID
  4. ULTOMIRIS [Suspect]
     Active Substance: RAVULIZUMAB-CWVZ
     Indication: Paroxysmal nocturnal haemoglobinuria
     Dosage: 2400 MILLIGRAM, Q8W
  5. EDOXABAN TOSYLATE [Concomitant]
     Active Substance: EDOXABAN TOSYLATE
  6. CALCITRIOL [Concomitant]
     Active Substance: CALCITRIOL
  7. PIASKY [Concomitant]
     Active Substance: CROVALIMAB-AKKZ
     Indication: Paroxysmal nocturnal haemoglobinuria

REACTIONS (2)
  - Interstitial lung disease [Fatal]
  - Hepatic function abnormal [Recovering/Resolving]
